FAERS Safety Report 25316950 (Version 2)
Quarter: 2025Q2

REPORT INFORMATION
  Report Type: Spontaneous
  Country: FR (occurrence: FR)
  Receive Date: 20250515
  Receipt Date: 20250530
  Transmission Date: 20250717
  Serious: Yes (Hospitalization)
  Sender: JAZZ
  Company Number: FR-JAZZ PHARMACEUTICALS-2025-FR-012332

PATIENT

DRUGS (4)
  1. CANNABIDIOL [Suspect]
     Active Substance: CANNABIDIOL
     Indication: Medication error
     Dosage: 150 MILLILITER, QD
     Route: 048
     Dates: start: 20250405, end: 20250405
  2. CLOBAZAM [Suspect]
     Active Substance: CLOBAZAM
     Indication: Medication error
     Dosage: 10 MILLIGRAM, QD
     Route: 048
     Dates: start: 20250405, end: 20250405
  3. TOPIRAMATE [Suspect]
     Active Substance: TOPIRAMATE
     Indication: Medication error
     Dosage: 100 MILLIGRAM, QD
     Route: 048
     Dates: start: 20250405, end: 20250405
  4. VALPROIC ACID [Suspect]
     Active Substance: VALPROIC ACID
     Indication: Medication error
     Dosage: 500 MILLIGRAM, QD
     Route: 048
     Dates: start: 20250405, end: 20250405

REACTIONS (3)
  - Mydriasis [Recovered/Resolved]
  - Wrong patient received product [Recovered/Resolved]
  - Wrong product administered [Recovered/Resolved]

NARRATIVE: CASE EVENT DATE: 20250405
